FAERS Safety Report 5008453-5 (Version None)
Quarter: 2006Q2

REPORT INFORMATION
  Report Type: 
  Country: None (occurrence: None)
  Receive Date: 20060522
  Receipt Date: 20060522
  Transmission Date: 20061013
  Serious: No
  Sender: FDA-Public Use
  Company Number: None

PATIENT
  Age: 70 Year
  Sex: Male
  Weight: 97.5234 kg

DRUGS (4)
  1. FLUDARABINE [Suspect]
     Indication: CHRONIC LYMPHOCYTIC LEUKAEMIA
     Dosage: 25 MG/M2 (54 MG) IV FOR 5 DAYS Q 4 WEEKS
     Route: 042
     Dates: start: 20060109
  2. FLUDARABINE [Suspect]
     Indication: LYMPHOCYTIC LYMPHOMA
     Dosage: 25 MG/M2 (54 MG) IV FOR 5 DAYS Q 4 WEEKS
     Route: 042
     Dates: start: 20060109
  3. NEULASTA [Concomitant]
  4. FLUDARA [Concomitant]

REACTIONS (4)
  - ERYTHEMA [None]
  - PRURITUS [None]
  - SCAB [None]
  - SKIN LESION [None]
